FAERS Safety Report 24742627 (Version 1)
Quarter: 2024Q4

REPORT INFORMATION
  Report Type: Spontaneous
  Country: TR (occurrence: TR)
  Receive Date: 20241217
  Receipt Date: 20241217
  Transmission Date: 20250115
  Serious: Yes (Hospitalization, Other)
  Sender: PERRIGO
  Company Number: TR-PERRIGO-24TR011249

PATIENT
  Age: 32 Year
  Sex: Female

DRUGS (1)
  1. ELLA [Suspect]
     Active Substance: ULIPRISTAL ACETATE
     Indication: Post coital contraception
     Dosage: 1 DOSAGE FORM, SINGLE
     Route: 048
     Dates: start: 20220830, end: 20220830

REACTIONS (5)
  - Internal haemorrhage [Recovered/Resolved with Sequelae]
  - Adnexal torsion [Recovered/Resolved with Sequelae]
  - Polycystic ovarian syndrome [Not Recovered/Not Resolved]
  - Ectopic pregnancy [Recovered/Resolved with Sequelae]
  - Pregnancy after post coital contraception [Recovered/Resolved with Sequelae]

NARRATIVE: CASE EVENT DATE: 20221004
